FAERS Safety Report 9510197 (Version 2)
Quarter: 2013Q3

REPORT INFORMATION
  Report Type: Spontaneous
  Country: US (occurrence: US)
  Receive Date: 20130909
  Receipt Date: 20130909
  Transmission Date: 20140515
  Serious: Yes (Other)
  Sender: FDA-Public Use
  Company Number: US-BRISTOL-MYERS SQUIBB COMPANY-18708362

PATIENT
  Age: 45 Year
  Sex: Female

DRUGS (10)
  1. ABILIFY TABS 10 MG [Suspect]
     Indication: DEPRESSION
  2. SAVELLA [Concomitant]
  3. NEURONTIN [Concomitant]
  4. CLONAZEPAM [Concomitant]
  5. HYDROCODONE [Concomitant]
  6. OXYCONTIN [Concomitant]
  7. FLEXERIL [Concomitant]
  8. ALBUTEROL [Concomitant]
  9. SYMBICORT [Concomitant]
  10. PEPCID [Concomitant]

REACTIONS (4)
  - Suicidal ideation [Unknown]
  - Crying [Unknown]
  - Sleep disorder [Unknown]
  - Malaise [Unknown]
